FAERS Safety Report 17242735 (Version 1)
Quarter: 2020Q1

REPORT INFORMATION
  Report Type: Spontaneous
  Country: US (occurrence: US)
  Receive Date: 20200106
  Receipt Date: 20200106
  Transmission Date: 20200409
  Serious: Yes (Disabling)
  Sender: FDA-Public Use
  Company Number: None

PATIENT
  Age: 33 Year
  Sex: Female
  Weight: 67.5 kg

DRUGS (4)
  1. VITAMIN D [Concomitant]
     Active Substance: VITAMIN D NOS
  2. HAIR/SKIN/NAILS SUPPLIMENT [Concomitant]
  3. CIPROFLOXACIN. [Suspect]
     Active Substance: CIPROFLOXACIN
     Indication: ANIMAL BITE
     Route: 048
  4. MULIVITE [Concomitant]

REACTIONS (8)
  - Vomiting [None]
  - Tendon disorder [None]
  - Disturbance in attention [None]
  - Musculoskeletal disorder [None]
  - Temporomandibular joint syndrome [None]
  - Hypoaesthesia [None]
  - Dizziness [None]
  - Paraesthesia [None]

NARRATIVE: CASE EVENT DATE: 20170613
